FAERS Safety Report 25023045 (Version 2)
Quarter: 2025Q2

REPORT INFORMATION
  Report Type: Spontaneous
  Country: BR (occurrence: BR)
  Receive Date: 20250228
  Receipt Date: 20250407
  Transmission Date: 20250717
  Serious: No
  Sender: TOLMAR
  Company Number: BR-TOLMAR, INC.-25BR056801

PATIENT

DRUGS (3)
  1. ELIGARD [Suspect]
     Active Substance: LEUPROLIDE ACETATE
     Indication: Precocious puberty
     Dates: start: 202311
  2. DEVICE [Suspect]
     Active Substance: DEVICE
     Indication: Precocious puberty
  3. PURAN [Concomitant]
     Active Substance: LEVOTHYROXINE SODIUM
     Indication: Product used for unknown indication

REACTIONS (3)
  - Intercepted product preparation error [Unknown]
  - Device leakage [Unknown]
  - Syringe issue [Unknown]
